FAERS Safety Report 20422919 (Version 3)
Quarter: 2022Q1

REPORT INFORMATION
  Report Type: Spontaneous
  Country: FR (occurrence: FR)
  Receive Date: 20220203
  Receipt Date: 20220217
  Transmission Date: 20220423
  Serious: Yes (Hospitalization, Other)
  Sender: FDA-Public Use
  Company Number: None

PATIENT
  Age: 36 Year
  Sex: Male
  Weight: 80 kg

DRUGS (13)
  1. COMIRNATY [Suspect]
     Active Substance: TOZINAMERAN
     Indication: COVID-19 immunisation
     Dosage: DOSE 1, SINGLE
     Route: 030
     Dates: start: 20210311, end: 20210311
  2. DOXORUBICIN HYDROCHLORIDE [Suspect]
     Active Substance: DOXORUBICIN HYDROCHLORIDE
     Indication: Hodgkin^s disease
     Dosage: 50 MG
     Route: 041
     Dates: start: 20210312
  3. BLEOMYCIN [Suspect]
     Active Substance: BLEOMYCIN SULFATE
     Indication: Hodgkin^s disease
     Dosage: 20 MG
     Route: 041
     Dates: start: 20210312
  4. DACARBAZINE [Suspect]
     Active Substance: DACARBAZINE
     Indication: Hodgkin^s disease
     Dosage: 750 MG, SINGLE
     Route: 042
     Dates: start: 20210312
  5. VINBLASTINE SULFATE [Suspect]
     Active Substance: VINBLASTINE SULFATE
     Indication: Hodgkin^s disease
     Dosage: 12 MG
     Route: 041
     Dates: start: 20210312
  6. TOPALGIC [Concomitant]
     Dosage: 50 MG, AS NEEDED
  7. INNOHEP [Concomitant]
     Active Substance: TINZAPARIN SODIUM
     Dosage: 17000 IU
     Route: 058
  8. FILGRASTIM [Concomitant]
     Active Substance: FILGRASTIM
     Dosage: 1 DF, 1X/DAY
     Route: 058
  9. ATOVAQUONE [Concomitant]
     Active Substance: ATOVAQUONE
     Dosage: 1 SPOONFUL, 2X/DAY
  10. EUPANTOL [Concomitant]
     Active Substance: PANTOPRAZOLE SODIUM
     Dosage: 20 MG, 1X/DAY, EVENING
  11. ONDANSETRON [Concomitant]
     Active Substance: ONDANSETRON
     Dosage: 8 MG, AS NEEDED
  12. VALACYCLOVIR HYDROCHLORIDE [Concomitant]
     Active Substance: VALACYCLOVIR HYDROCHLORIDE
     Dosage: 500 MG, 2X/DAY
  13. SODIUM BICARBONATE [Concomitant]
     Active Substance: SODIUM BICARBONATE

REACTIONS (24)
  - Drug reaction with eosinophilia and systemic symptoms [Recovered/Resolved]
  - Drug ineffective [Unknown]
  - COVID-19 [Unknown]
  - Renal failure [Unknown]
  - Vomiting [Unknown]
  - Epistaxis [Unknown]
  - Mucosal inflammation [Unknown]
  - Cytopenia [Unknown]
  - Skin lesion [Unknown]
  - Dermatitis exfoliative generalised [Unknown]
  - Diabetes insipidus [Unknown]
  - Hyperthyroidism [Unknown]
  - Diabetes mellitus [Unknown]
  - Toxic skin eruption [Unknown]
  - Haemophagocytic lymphohistiocytosis [Unknown]
  - Pyrexia [Unknown]
  - Face oedema [Unknown]
  - Hyperglycaemia [Unknown]
  - Bacterial test positive [Unknown]
  - Duodenitis [Unknown]
  - Colitis [Unknown]
  - Atelectasis [Unknown]
  - Pleural effusion [Unknown]
  - Neutrophil count increased [Unknown]

NARRATIVE: CASE EVENT DATE: 20210313
